FAERS Safety Report 8511033-8 (Version None)
Quarter: 2012Q3

REPORT INFORMATION
  Report Type: 
  Country: None (occurrence: None)
  Receive Date: 20120716
  Receipt Date: 20120705
  Transmission Date: 20120928
  Serious: Yes (Other)
  Sender: FDA-Public Use
  Company Number: US-SANOFI-AVENTIS-2012SA048602

PATIENT
  Sex: Male

DRUGS (3)
  1. NOVOLOG [Suspect]
  2. SOLOSTAR [Suspect]
  3. LANTUS [Suspect]
     Dosage: DOSE:37 UNIT(S)
     Route: 058

REACTIONS (1)
  - RENAL FAILURE [None]
